FAERS Safety Report 9671000 (Version 1)
Quarter: 2013Q4

REPORT INFORMATION
  Report Type: Spontaneous
  Country: FR (occurrence: FR)
  Receive Date: 20131106
  Receipt Date: 20131106
  Transmission Date: 20140711
  Serious: Yes (Disabling)
  Sender: FDA-Public Use
  Company Number: FR-ABBVIE-13P-056-1163515-00

PATIENT
  Age: 22 Year
  Sex: Female
  Weight: 50 kg

DRUGS (3)
  1. HUMIRA [Suspect]
     Indication: CROHN^S DISEASE
     Route: 058
     Dates: start: 200804, end: 200808
  2. REMICADE [Suspect]
     Indication: CROHN^S DISEASE
     Route: 042
     Dates: start: 200504, end: 200804
  3. REMICADE [Suspect]
     Dates: start: 200808, end: 200809

REACTIONS (2)
  - Skin reaction [Unknown]
  - SLE arthritis [Recovered/Resolved]
